FAERS Safety Report 19675334 (Version 1)
Quarter: 2021Q3

REPORT INFORMATION
  Report Type: Spontaneous
  Country: DE (occurrence: DE)
  Receive Date: 20210809
  Receipt Date: 20210809
  Transmission Date: 20211014
  Serious: Yes (Hospitalization, Other)
  Sender: FDA-Public Use
  Company Number: DE-ABBVIE-21K-062-4023487-00

PATIENT
  Sex: Male

DRUGS (1)
  1. NORVIR [Suspect]
     Active Substance: RITONAVIR
     Indication: HIV INFECTION
     Route: 050

REACTIONS (2)
  - Surgery [Unknown]
  - Mechanical ventilation [Unknown]

NARRATIVE: CASE EVENT DATE: 2021
